FAERS Safety Report 10063213 (Version 3)
Quarter: 2014Q2

REPORT INFORMATION
  Report Type: Report from Study
  Country: DE (occurrence: DE)
  Receive Date: 20140407
  Receipt Date: 20140422
  Transmission Date: 20141212
  Serious: Yes (Hospitalization, Other)
  Sender: FDA-Public Use
  Company Number: DE-BAYER-2014-034175

PATIENT
  Age: 78 Year
  Sex: Female

DRUGS (5)
  1. EYLEA [Suspect]
     Indication: AGE-RELATED MACULAR DEGENERATION
     Dosage: TOTAL OF 3 DOSES
     Route: 031
     Dates: start: 20130326
  2. EYLEA [Suspect]
     Indication: AGE-RELATED MACULAR DEGENERATION
     Dosage: UNK
     Dates: start: 20130527
  3. ASS [Suspect]
     Indication: MYOCARDIAL INFARCTION
     Dosage: UNK
     Route: 048
     Dates: end: 2014
  4. BISOPROLOL [Concomitant]
     Indication: HYPERTENSION
     Route: 048
  5. ENALAPRIL [Concomitant]
     Indication: HYPERTENSION
     Route: 048

REACTIONS (4)
  - VIIth nerve paralysis [Recovered/Resolved]
  - Cataract [None]
  - Facial paresis [None]
  - Cerebrovascular accident [None]
